FAERS Safety Report 7814782-X (Version None)
Quarter: 2011Q4

REPORT INFORMATION
  Report Type: 
  Country: None (occurrence: None)
  Receive Date: 20111014
  Receipt Date: 20111003
  Transmission Date: 20120403
  Serious: Yes (Hospitalization)
  Sender: FDA-Public Use
  Company Number: US-ROCHE-596024

PATIENT

DRUGS (5)
  1. CARBOPLATIN [Suspect]
     Indication: BREAST CANCER METASTATIC
     Dosage: AREA UNDER THE CURVE 2 GIVEN OVER 60 MIN ON DAY 1, 8 AND 15 EVERY 4 WEEKS CYCLE FOR 6 CYCLES.
     Route: 042
  2. HERCEPTIN [Suspect]
     Dosage: MAINTENANCE DOSE, GIVEN OVER 30 MIN ON DAY 1, 8, 15 AND 22 EVERY 4 WEEKS CYCLE FOR MAX 6 CYCLES.
     Route: 042
  3. AVASTIN [Suspect]
     Indication: BREAST CANCER METASTATIC
     Dosage: GIVEN OVER 30-90 MIN ON DAYS 1 AND 15 EVERY 4 WEEKS CYCLE FOR MAX 6 CYCLES.
     Route: 042
  4. PACLITAXEL [Suspect]
     Indication: BREAST CANCER METASTATIC
     Dosage: GIVEN OVER 60 MIN ON DAY 1, 8 AND 15 EVERY 4 WEEKS CYCLE FOR MAX 6 CYCLES.
     Route: 042
  5. HERCEPTIN [Suspect]
     Indication: BREAST CANCER METASTATIC
     Dosage: LOADING DOSE GIVEN OVER 90 MIN ON DAY 1, CYCLE 1.
     Route: 042

REACTIONS (8)
  - BLOOD CREATININE INCREASED [None]
  - DIARRHOEA [None]
  - VOMITING [None]
  - HYPERKALAEMIA [None]
  - NAUSEA [None]
  - RENAL FAILURE ACUTE [None]
  - DEHYDRATION [None]
  - TROPONIN I INCREASED [None]
